FAERS Safety Report 12847906 (Version 1)
Quarter: 2016Q4

REPORT INFORMATION
  Report Type: Spontaneous
  Country: US (occurrence: US)
  Receive Date: 20161014
  Receipt Date: 20161014
  Transmission Date: 20170207
  Serious: No
  Sender: FDA-Public Use
  Company Number: US-TEVA-694617ACC

PATIENT
  Age: 24 Year
  Sex: Female
  Weight: 63.56 kg

DRUGS (1)
  1. PLAN B ONE-STEP [Suspect]
     Active Substance: LEVONORGESTREL
     Indication: POST COITAL CONTRACEPTION
     Dates: start: 20160818, end: 20160818

REACTIONS (5)
  - Menstruation irregular [Recovered/Resolved]
  - Breast tenderness [Recovered/Resolved]
  - Nausea [Not Recovered/Not Resolved]
  - Dysmenorrhoea [Not Recovered/Not Resolved]
  - Hypomenorrhoea [Recovered/Resolved]

NARRATIVE: CASE EVENT DATE: 20160827
